FAERS Safety Report 10346970 (Version 1)
Quarter: 2014Q3

REPORT INFORMATION
  Report Type: Spontaneous
  Country: US (occurrence: US)
  Receive Date: 20140729
  Receipt Date: 20140729
  Transmission Date: 20150326
  Serious: No
  Sender: FDA-Public Use
  Company Number: US-GLAXOSMITHKLINE-A1072796A

PATIENT
  Age: 74 Year
  Sex: Male

DRUGS (4)
  1. LOSARTAN [Concomitant]
     Active Substance: LOSARTAN
  2. WARFARIN [Concomitant]
     Active Substance: WARFARIN
  3. JALYN [Suspect]
     Active Substance: DUTASTERIDE\TAMSULOSIN HYDROCHLORIDE
     Indication: POLLAKIURIA
     Dosage: 1CAP PER DAY
     Route: 048
     Dates: start: 20140505
  4. AZOR (AMLODIPINE BESILATE + OLMESARTAN MEDOXOMIL) [Concomitant]

REACTIONS (1)
  - Drug ineffective [Unknown]

NARRATIVE: CASE EVENT DATE: 201405
